FAERS Safety Report 9293748 (Version 8)
Quarter: 2017Q1

REPORT INFORMATION
  Report Type: Spontaneous
  Country: US (occurrence: US)
  Receive Date: 20130516
  Receipt Date: 20170210
  Transmission Date: 20170429
  Serious: Yes (Hospitalization, Disabling, Other)
  Sender: FDA-Public Use
  Company Number: US-009507513-1305USA009966

PATIENT
  Sex: Male
  Weight: 54.42 kg

DRUGS (4)
  1. PROPECIA [Suspect]
     Active Substance: FINASTERIDE
     Indication: ALOPECIA
  2. NIZORAL [Concomitant]
     Active Substance: KETOCONAZOLE
     Indication: ALOPECIA
  3. PROPECIA [Suspect]
     Active Substance: FINASTERIDE
     Indication: ANDROGENETIC ALOPECIA
     Dosage: 1 MG, QD
     Route: 048
     Dates: start: 2001, end: 200902
  4. ADDERALL [Concomitant]
     Active Substance: AMPHETAMINE ASPARTATE\AMPHETAMINE SULFATE\DEXTROAMPHETAMINE SACCHARATE\DEXTROAMPHETAMINE SULFATE
     Indication: ATTENTION DEFICIT/HYPERACTIVITY DISORDER
     Dosage: 30 DF, TID
     Dates: start: 1998, end: 2004

REACTIONS (25)
  - Sleep phase rhythm disturbance [Unknown]
  - Loss of libido [Unknown]
  - Arthralgia [Unknown]
  - Feeling abnormal [Unknown]
  - Back pain [Unknown]
  - Depression [Unknown]
  - Male genital atrophy [Unknown]
  - Nausea [Unknown]
  - Drug ineffective [Unknown]
  - Depression [Not Recovered/Not Resolved]
  - Confusional state [Unknown]
  - Blood testosterone decreased [Unknown]
  - Penis injury [Unknown]
  - Sexual dysfunction [Not Recovered/Not Resolved]
  - Anxiety [Not Recovered/Not Resolved]
  - Butterfly rash [Unknown]
  - Migraine with aura [Unknown]
  - Infection [Unknown]
  - Hormone level abnormal [Unknown]
  - Brain injury [Unknown]
  - Fatigue [Unknown]
  - Panic disorder [Unknown]
  - Phobia [Unknown]
  - Ejaculation disorder [Unknown]
  - Erectile dysfunction [Unknown]

NARRATIVE: CASE EVENT DATE: 2001
